FAERS Safety Report 7692773-X (Version None)
Quarter: 2011Q3

REPORT INFORMATION
  Report Type: 
  Country: None (occurrence: None)
  Receive Date: 20110819
  Receipt Date: 20110807
  Transmission Date: 20111222
  Serious: Yes (Hospitalization)
  Sender: FDA-Public Use
  Company Number: CA-ELI_LILLY_AND_COMPANY-CA201006002585

PATIENT
  Age: 69 Year
  Sex: Male

DRUGS (11)
  1. IMURAN [Concomitant]
  2. PERCOCET [Concomitant]
     Dosage: UNK, AS NEEDED
  3. MESTINON [Concomitant]
  4. CELLCEPT [Concomitant]
  5. ZYTRAM [Concomitant]
  6. ACETAMINOPHEN [Concomitant]
  7. FORTEO [Suspect]
     Indication: OSTEOPOROSIS
     Dosage: 20 UG, DAILY (1/D)
     Route: 058
     Dates: start: 20091201, end: 20110301
  8. ASCORBIC ACID [Concomitant]
  9. ASPIRIN [Concomitant]
     Dosage: 81 MG, UNK
  10. PREDNISONE [Concomitant]
     Dosage: 10 MG, UNK
  11. VITAMIN D [Concomitant]
     Dosage: 1000 IU, UNK

REACTIONS (6)
  - NEPHROLITHIASIS [None]
  - BACK PAIN [None]
  - PAIN [None]
  - BONE DENSITY DECREASED [None]
  - BLOOD URINE PRESENT [None]
  - URINARY SEDIMENT PRESENT [None]
